FAERS Safety Report 5277697-X (Version None)
Quarter: 2007Q1

REPORT INFORMATION
  Report Type: 
  Country: None (occurrence: None)
  Receive Date: 20070321
  Receipt Date: 20070307
  Transmission Date: 20070707
  Serious: Yes (Hospitalization)
  Sender: FDA-Public Use
  Company Number: US019564

PATIENT
  Age: 40 Year
  Sex: Female
  Weight: 79.5 kg

DRUGS (5)
  1. GABITRIL [Suspect]
     Indication: NEURALGIA
     Dosage: 2 MG QHS ORAL
     Route: 048
     Dates: end: 20070201
  2. GABITRIL [Suspect]
     Indication: NEURALGIA
     Dosage: 1 MG QD ORAL
     Route: 048
     Dates: start: 20070315
  3. DOLOBID [Concomitant]
  4. NORVASC [Concomitant]
  5. ALLEGRA [Concomitant]

REACTIONS (2)
  - IDIOPATHIC THROMBOCYTOPENIC PURPURA [None]
  - VITAMIN B12 DEFICIENCY [None]
